FAERS Safety Report 20016042 (Version 1)
Quarter: 2021Q4

REPORT INFORMATION
  Report Type: Spontaneous
  Country: US (occurrence: None)
  Receive Date: 20211102
  Receipt Date: 20211102
  Transmission Date: 20220303
  Serious: Yes (Life-Threatening, Hospitalization, Disabling, Other)
  Sender: FDA-Public Use
  Company Number: None

PATIENT
  Age: 56 Year
  Sex: Male
  Weight: 75.15 kg

DRUGS (2)
  1. DEXAMETHASONE [Suspect]
     Active Substance: DEXAMETHASONE
     Indication: COVID-19
     Dosage: OTHER QUANTITY : 1 TABLET(S);?
     Route: 048
     Dates: start: 20211001, end: 20211007
  2. GLIPIZIDE [Suspect]
     Active Substance: GLIPIZIDE
     Indication: COVID-19
     Dosage: OTHER QUANTITY : 1 TABLET(S);?FREQUENCY : EVERY DAY BEFORE NOON;?
     Route: 048
     Dates: start: 20211001, end: 20211007

REACTIONS (2)
  - Renal failure [None]
  - Near death experience [None]

NARRATIVE: CASE EVENT DATE: 20211008
